FAERS Safety Report 26115638 (Version 3)
Quarter: 2025Q4

REPORT INFORMATION
  Report Type: Spontaneous
  Country: US (occurrence: US)
  Receive Date: 20251203
  Receipt Date: 20251231
  Transmission Date: 20260118
  Serious: Yes (Other)
  Sender: CATALYST PHARMA
  Company Number: US-CATALYST PHARMACEUTICALS, INC-US-CATA-25-01842

PATIENT
  Sex: Female
  Weight: 88.435 kg

DRUGS (13)
  1. FIRDAPSE [Suspect]
     Active Substance: AMIFAMPRIDINE PHOSPHATE
     Indication: Myasthenic syndrome
     Dosage: 15 MG TOTAL DAILY (0.5 TABLET 3 TIMES A DAY FOR 4 DAYS AND THEN INCREASING BY HALF A TABLET EVERY 4
     Route: 048
     Dates: start: 20251029, end: 2025
  2. FIRDAPSE [Suspect]
     Active Substance: AMIFAMPRIDINE PHOSPHATE
     Dosage: 45 MG PER DAY
     Route: 048
     Dates: start: 20251119, end: 2025
  3. FIRDAPSE [Suspect]
     Active Substance: AMIFAMPRIDINE PHOSPHATE
     Dosage: 60 MG TOTAL DAILY DOSE AND TITRATING (6 TABLETS DAILY IN DIVIDED DOSES, A TOTAL OF 60 MG A DAY)
     Route: 048
     Dates: start: 2025
  4. DOXEPIN [Concomitant]
     Active Substance: DOXEPIN
     Indication: Major depression
     Dosage: 10 MG
     Route: 048
  5. DOXEPIN [Concomitant]
     Active Substance: DOXEPIN
     Indication: Insomnia
  6. KEPPRA [Concomitant]
     Active Substance: LEVETIRACETAM
     Indication: Seizure
     Dosage: 500 MG DAILY
     Route: 048
  7. MULTIVITAMIN WOMEN^S [Concomitant]
     Indication: Supplementation therapy
     Dosage: 1 TABLET DAILY
     Route: 065
  8. PHENTERMINE [Concomitant]
     Active Substance: PHENTERMINE
     Indication: Fatigue
     Dosage: 37.5 MG
     Route: 065
  9. PREGABALIN [Concomitant]
     Active Substance: PREGABALIN
     Indication: Pain
     Dosage: 100 MG
     Route: 048
  10. QULIPTA [Concomitant]
     Active Substance: ATOGEPANT
     Indication: Migraine
     Dosage: 30 MG
     Route: 048
  11. TIZANIDINE [Concomitant]
     Active Substance: TIZANIDINE
     Indication: Muscle spasms
     Dosage: 2 MG
     Route: 048
  12. VRAYLAR [Concomitant]
     Active Substance: CARIPRAZINE
     Indication: Bipolar disorder
     Dosage: 3 MG
     Route: 065
  13. UNSPECIFIED INGREDIENT [Concomitant]
     Active Substance: UNSPECIFIED INGREDIENT
     Indication: Intervertebral disc protrusion
     Dosage: AS NEEDED
     Route: 065

REACTIONS (4)
  - Female sterilisation [Recovered/Resolved]
  - Uterine cervix dilation procedure [Recovered/Resolved]
  - Menopause [Not Recovered/Not Resolved]
  - Paraesthesia oral [Recovered/Resolved]

NARRATIVE: CASE EVENT DATE: 20250101
